FAERS Safety Report 8576897-0 (Version None)
Quarter: 2012Q3

REPORT INFORMATION
  Report Type: 
  Country: None (occurrence: None)
  Receive Date: 20120807
  Receipt Date: 20120727
  Transmission Date: 20120928
  Serious: Yes (Hospitalization)
  Sender: FDA-Public Use
  Company Number: JP-BRISTOL-MYERS SQUIBB COMPANY-16681322

PATIENT
  Age: 63 Year
  Sex: Female

DRUGS (9)
  1. CELECOXIB [Concomitant]
     Indication: RHEUMATOID ARTHRITIS
     Dosage: 2 TABS/DAY IN 2 DIVIDED DOSES
  2. LOXONIN [Concomitant]
     Indication: RHEUMATOID ARTHRITIS
     Dosage: 2 TABS/DAY IN 2 DIVIDED DOSES.
  3. ORENCIA [Suspect]
     Indication: RHEUMATOID ARTHRITIS
     Dosage: ORENCIA:27JUN12,25JUL11,23AUG11,20SEP11,18OCT11,15NOV11
     Route: 041
     Dates: start: 20110530, end: 20111115
  4. METHOTREXATE [Concomitant]
     Indication: RHEUMATOID ARTHRITIS
     Dosage: 4MG:21MY11;6MG/WK:22MY11-01JUN11,8MG/WK:02JUN-07JUL11,10MG/WK:08/JUL11-23AUG11,12MG/WK:24AUG11-ONG
  5. LANSOPRAZOLE [Concomitant]
     Indication: PROPHYLAXIS AGAINST GASTROINTESTINAL ULCER
     Dosage: 1TAB
  6. ALENDRONATE SODIUM [Concomitant]
     Indication: OSTEOPOROSIS PROPHYLAXIS
     Dosage: 1 TAB/WEEK
  7. PREDNISONE [Concomitant]
     Indication: RHEUMATOID ARTHRITIS
     Dosage: 5MG:10-30JUN11:10MG;1JL-17OT:18OT9MG:8MG15NOV11;6MG:13DC11-6FB12:5MG-7FB-5MR:4MG6MR30APR;2MG:1MAY12
     Route: 048
     Dates: start: 20110610
  8. IRSOGLADINE MALEATE [Concomitant]
     Indication: PROPHYLAXIS AGAINST GASTROINTESTINAL ULCER
     Dosage: 1DF = 2 TAB/DAY, IN 2 DIVIDED DOSES
  9. FOLIC ACID [Concomitant]
     Indication: PROPHYLAXIS

REACTIONS (1)
  - CEREBRAL HAEMORRHAGE [None]
